FAERS Safety Report 15465978 (Version 1)
Quarter: 2018Q4

REPORT INFORMATION
  Report Type: Spontaneous
  Country: US (occurrence: US)
  Receive Date: 20181004
  Receipt Date: 20181004
  Transmission Date: 20190204
  Serious: No
  Sender: FDA-Public Use
  Company Number: US-GLAXOSMITHKLINE-US2018175017

PATIENT
  Sex: Female

DRUGS (1)
  1. ABREVA [Suspect]
     Active Substance: DOCOSANOL
     Indication: CHEILITIS
     Dosage: UNK, 3-4 TIMES A DAY

REACTIONS (5)
  - Inappropriate schedule of product administration [Unknown]
  - Application site pain [Unknown]
  - Product use in unapproved indication [Unknown]
  - Application site discomfort [Unknown]
  - Incorrect product administration duration [Unknown]
